FAERS Safety Report 9626456 (Version 2)
Quarter: 2013Q4

REPORT INFORMATION
  Report Type: Report from Study
  Country: CA (occurrence: CA)
  Receive Date: 20131016
  Receipt Date: 20131016
  Transmission Date: 20140711
  Serious: Yes (Other)
  Sender: FDA-Public Use
  Company Number: CA-ROCHE-1267819

PATIENT
  Sex: Male
  Weight: 90.9 kg

DRUGS (7)
  1. ACTEMRA [Suspect]
     Indication: RHEUMATOID ARTHRITIS
     Route: 042
     Dates: start: 20130611, end: 20130710
  2. CYMBALTA [Concomitant]
     Indication: PAIN
  3. ESOMEPRAZOLE MAGNESIUM [Concomitant]
  4. METHOCARBAMOL [Concomitant]
  5. IBUPROFEN [Concomitant]
  6. FISH OIL [Concomitant]
  7. NAPROXEN [Concomitant]
     Route: 065

REACTIONS (2)
  - Epigastric discomfort [Not Recovered/Not Resolved]
  - Gastric disorder [Not Recovered/Not Resolved]
